FAERS Safety Report 12709700 (Version 1)
Quarter: 2016Q3

REPORT INFORMATION
  Report Type: Spontaneous
  Country: US (occurrence: None)
  Receive Date: 20160901
  Receipt Date: 20160901
  Transmission Date: 20161109
  Serious: Yes (Other)
  Sender: FDA-Public Use
  Company Number: None

PATIENT
  Sex: Male
  Weight: 73.03 kg

DRUGS (2)
  1. OXYCODONE ER [Suspect]
     Active Substance: OXYCODONE
     Indication: PAIN
     Route: 048
     Dates: start: 20160322, end: 20160829
  2. OXYCODONE ER [Suspect]
     Active Substance: OXYCODONE
     Indication: CERVICAL RADICULOPATHY
     Route: 048
     Dates: start: 20160322, end: 20160829

REACTIONS (3)
  - Product substitution issue [None]
  - Abdominal pain upper [None]
  - Abdominal discomfort [None]
